FAERS Safety Report 11095972 (Version 2)
Quarter: 2015Q2

REPORT INFORMATION
  Report Type: Spontaneous
  Country: US (occurrence: US)
  Receive Date: 20150507
  Receipt Date: 20150518
  Transmission Date: 20150821
  Serious: Yes (Death)
  Sender: FDA-Public Use
  Company Number: US-009507513-1505USA001678

PATIENT
  Age: 76 Year
  Sex: Male

DRUGS (3)
  1. EMEND [Suspect]
     Active Substance: APREPITANT
     Dosage: 80 MG ON DAY 2
     Route: 048
     Dates: start: 2015, end: 2015
  2. EMEND [Suspect]
     Active Substance: APREPITANT
     Dosage: 125 MG ON DAY 1
     Route: 048
     Dates: start: 2015, end: 2015
  3. EMEND [Suspect]
     Active Substance: APREPITANT
     Dosage: 80 MG ON DAY 3
     Route: 048
     Dates: start: 2015, end: 2015

REACTIONS (1)
  - Death [Fatal]

NARRATIVE: CASE EVENT DATE: 20150428
